FAERS Safety Report 15200821 (Version 3)
Quarter: 2018Q4

REPORT INFORMATION
  Report Type: Spontaneous
  Country: PL (occurrence: PL)
  Receive Date: 20180726
  Receipt Date: 20181119
  Transmission Date: 20190204
  Serious: Yes (Hospitalization, Other)
  Sender: FDA-Public Use
  Company Number: PL-SA-2018SA198889

PATIENT
  Age: 60 Year
  Sex: Male

DRUGS (20)
  1. GLICLAZIDE [Suspect]
     Active Substance: GLICLAZIDE
     Dosage: 60 MG IN THE MORNING (SLOW-RELEASE)
     Route: 048
     Dates: start: 200810
  2. GLICLAZIDE [Suspect]
     Active Substance: GLICLAZIDE
     Dosage: 90 MG/D
     Route: 048
     Dates: start: 200902
  3. GLIMEPIRIDE. [Suspect]
     Active Substance: GLIMEPIRIDE
     Indication: TYPE 2 DIABETES MELLITUS
     Dosage: 4 MG, QD
     Route: 048
     Dates: start: 201012
  4. METFORMIN HYDROCHLORIDE. [Suspect]
     Active Substance: METFORMIN HYDROCHLORIDE
     Dosage: 500 MG/D, SLOW-RELEASE PRODUCT
     Route: 048
     Dates: start: 200909
  5. GLICLAZIDE [Suspect]
     Active Substance: GLICLAZIDE
     Indication: TYPE 2 DIABETES MELLITUS
     Dosage: 2 TABLETS OF SLOW-RELEASE GLICLAZIDE 30 MG DAILY IN THE MORNING
     Route: 048
     Dates: start: 200804
  6. METFORMIN HYDROCHLORIDE. [Suspect]
     Active Substance: METFORMIN HYDROCHLORIDE
     Dosage: 1700 MG, QD
     Route: 048
     Dates: start: 200902
  7. INSULIN GLARGINE [Suspect]
     Active Substance: INSULIN GLARGINE
     Indication: TYPE 2 DIABETES MELLITUS
     Dosage: 10 U BEFORE GOING TO BED, SINGLE USE PEN
     Dates: start: 201105
  8. GLICLAZIDE [Suspect]
     Active Substance: GLICLAZIDE
     Dosage: 90 MG/D
     Route: 048
     Dates: start: 200912
  9. GLIMEPIRIDE. [Suspect]
     Active Substance: GLIMEPIRIDE
     Dosage: 4 MG, QD
     Route: 048
     Dates: start: 201103, end: 201105
  10. METFORMIN HYDROCHLORIDE. [Suspect]
     Active Substance: METFORMIN HYDROCHLORIDE
     Dosage: 1500 MG/D, SLOW-RELEASE PRODUCT
     Route: 048
     Dates: start: 201005
  11. INSULIN HUMAN REGULAR [Suspect]
     Active Substance: INSULIN HUMAN
     Dosage: 10-12 U BEFORE MEALS
     Dates: start: 201106
  12. METFORMIN HYDROCHLORIDE. [Suspect]
     Active Substance: METFORMIN HYDROCHLORIDE
     Indication: TYPE 2 DIABETES MELLITUS
     Dosage: 500 MG, TID
     Route: 048
     Dates: start: 200810
  13. GLICLAZIDE [Suspect]
     Active Substance: GLICLAZIDE
     Dosage: 90 MG/D
     Route: 048
     Dates: start: 201005
  14. GLICLAZIDE [Suspect]
     Active Substance: GLICLAZIDE
     Dosage: 90 MG/D
     Route: 048
     Dates: start: 200909
  15. METFORMIN HYDROCHLORIDE. [Suspect]
     Active Substance: METFORMIN HYDROCHLORIDE
     Dosage: 750 MG/D, SLOW-RELEASE PRODUCT
     Route: 048
     Dates: start: 200912
  16. METFORMIN HYDROCHLORIDE. [Suspect]
     Active Substance: METFORMIN HYDROCHLORIDE
     Dosage: 2250 MG/D, SLOW-RELEASE PRODUCT
     Route: 048
     Dates: start: 201012
  17. METFORMIN HYDROCHLORIDE. [Suspect]
     Active Substance: METFORMIN HYDROCHLORIDE
     Dosage: 1500 MG/D, SLOW-RELEASE PRODUCT
     Route: 048
     Dates: start: 201103, end: 201105
  18. PREDNISONE. [Suspect]
     Active Substance: PREDNISONE
     Indication: DRUG-INDUCED LIVER INJURY
     Dosage: UNK
     Dates: start: 2011, end: 2011
  19. PREDNISONE. [Suspect]
     Active Substance: PREDNISONE
     Dosage: 10 MG WITH BREAKFAST AND 10 MG WITH LUNCH
     Dates: start: 2011
  20. INSULIN HUMAN REGULAR [Suspect]
     Active Substance: INSULIN HUMAN
     Indication: TYPE 2 DIABETES MELLITUS
     Dosage: UNK, TID ( BEFORE MEALS)
     Dates: start: 201105

REACTIONS (5)
  - Drug-induced liver injury [Recovered/Resolved]
  - Yellow skin [Recovered/Resolved]
  - Eye colour change [Recovered/Resolved]
  - Therapeutic response decreased [Unknown]
  - Chromaturia [Recovered/Resolved]

NARRATIVE: CASE EVENT DATE: 201106
